FAERS Safety Report 9680318 (Version 8)
Quarter: 2014Q2

REPORT INFORMATION
  Report Type: Report from Study
  Country: US (occurrence: US)
  Receive Date: 20131111
  Receipt Date: 20140425
  Transmission Date: 20141212
  Serious: Yes (Hospitalization)
  Sender: FDA-Public Use
  Company Number: US-ROCHE-1220481

PATIENT
  Age: 63 Year
  Sex: Female

DRUGS (24)
  1. MYCOPHENOLATE MOFETIL [Suspect]
     Indication: RENAL TRANSPLANT
     Route: 048
     Dates: start: 20120412
  2. BELATACEPT [Suspect]
     Indication: RENAL TRANSPLANT
     Route: 042
     Dates: start: 20070114
  3. CO-TRIMOXAZOLE [Concomitant]
     Route: 065
     Dates: start: 20111114
  4. CARVEDILOL [Concomitant]
     Route: 065
     Dates: start: 20100621
  5. ESOMEPRAZOLE [Concomitant]
     Route: 065
     Dates: start: 20080514
  6. ESCITALOPRAM OXALATE [Concomitant]
     Route: 065
     Dates: start: 20080530
  7. EPOETIN ALFA [Concomitant]
     Route: 065
     Dates: start: 20111114
  8. FERROUS SULFATE [Concomitant]
     Route: 065
     Dates: start: 20070511
  9. LOSARTAN [Concomitant]
     Route: 065
     Dates: start: 20120913
  10. ISOSORBIDE DINITRATE [Concomitant]
     Route: 065
     Dates: start: 20130617
  11. RISPERIDONE [Concomitant]
     Route: 065
     Dates: start: 20101223
  12. ZOCOR [Concomitant]
     Route: 065
     Dates: start: 20070116
  13. ZOLPIDEM [Concomitant]
     Route: 065
     Dates: start: 20080603
  14. LEVOFLOXACIN [Concomitant]
     Route: 065
     Dates: start: 20130308
  15. VANCOMYCIN [Concomitant]
     Route: 065
     Dates: start: 20130313
  16. AZTREONAM [Concomitant]
     Route: 065
     Dates: start: 20130313, end: 20130326
  17. METRONIDAZOL [Concomitant]
     Route: 065
     Dates: start: 20130313, end: 20130326
  18. FUROSEMIDE [Concomitant]
     Route: 065
     Dates: start: 20130327
  19. FLUCONAZOLE [Concomitant]
     Route: 065
     Dates: start: 20130612
  20. SIMVASTATIN [Concomitant]
     Route: 065
     Dates: start: 20070116
  21. HYDROCODEINE TARTRATE [Concomitant]
     Route: 065
     Dates: start: 20130911
  22. ACETAMINOPHEN [Concomitant]
     Route: 065
     Dates: start: 20130911
  23. LOPERAMIDE [Concomitant]
     Route: 065
     Dates: start: 20131023
  24. CEFEPIME HCL [Concomitant]
     Route: 065
     Dates: start: 20131024, end: 20131031

REACTIONS (9)
  - Necrotising fasciitis [Recovered/Resolved with Sequelae]
  - Wound infection [Recovered/Resolved]
  - Deep vein thrombosis [Recovered/Resolved]
  - Anaemia [Recovered/Resolved]
  - Diverticular perforation [Recovered/Resolved]
  - Abdominal hernia [Recovered/Resolved]
  - Cellulitis [Recovered/Resolved]
  - Dehydration [Recovered/Resolved]
  - Diverticulitis [Unknown]
